FAERS Safety Report 8106084-1 (Version None)
Quarter: 2012Q1

REPORT INFORMATION
  Report Type: 
  Country: None (occurrence: None)
  Receive Date: 20120202
  Receipt Date: 20120131
  Transmission Date: 20120608
  Serious: No
  Sender: FDA-Public Use
  Company Number: US-PFIZER INC-2012026729

PATIENT
  Sex: Male
  Weight: 104.31 kg

DRUGS (7)
  1. COREG [Concomitant]
     Dosage: UNK
  2. MAG-OX [Concomitant]
     Dosage: UNK
  3. LIPITOR [Suspect]
     Indication: BLOOD CHOLESTEROL INCREASED
     Dosage: 40 MG, 1X/DAY
     Route: 048
     Dates: start: 20111001, end: 20120101
  4. TRAZODONE [Concomitant]
     Dosage: 100 MG, UNK
  5. LISINOPRIL [Concomitant]
     Dosage: 10 MG, UNK
  6. ALLOPURINOL [Concomitant]
     Dosage: UNK
  7. PACERONE [Concomitant]
     Dosage: 200 MG, UNK

REACTIONS (2)
  - NERVOUS SYSTEM DISORDER [None]
  - MEMORY IMPAIRMENT [None]
